FAERS Safety Report 11590908 (Version 1)
Quarter: 2015Q4

REPORT INFORMATION
  Report Type: Report from Study
  Country: US (occurrence: US)
  Receive Date: 20151003
  Receipt Date: 20151003
  Transmission Date: 20160304
  Serious: Yes (Other)
  Sender: FDA-Public Use
  Company Number: US-ABBVIE-15K-163-1470310-00

PATIENT
  Age: 35 Year
  Sex: Female

DRUGS (9)
  1. ZANAFLEX [Concomitant]
     Active Substance: TIZANIDINE HYDROCHLORIDE
     Indication: MUSCLE SPASMS
  2. TOPIRAMATE. [Concomitant]
     Active Substance: TOPIRAMATE
     Indication: NEURALGIA
  3. OXYCONTIN [Concomitant]
     Active Substance: OXYCODONE HYDROCHLORIDE
     Indication: PAIN
  4. OXYCODONE [Concomitant]
     Active Substance: OXYCODONE
     Indication: PAIN
  5. HUMIRA [Suspect]
     Active Substance: ADALIMUMAB
     Route: 065
     Dates: start: 20150601, end: 20150731
  6. HUMIRA [Suspect]
     Active Substance: ADALIMUMAB
     Indication: RHEUMATOID ARTHRITIS
     Route: 065
     Dates: start: 20150317, end: 201504
  7. TOPIRAMATE. [Concomitant]
     Active Substance: TOPIRAMATE
     Indication: MEDICAL DEVICE IMPLANTATION
  8. TOPIRAMATE. [Concomitant]
     Active Substance: TOPIRAMATE
     Indication: INTERVERTEBRAL DISC PROTRUSION
  9. PRILOSEC [Concomitant]
     Active Substance: OMEPRAZOLE MAGNESIUM
     Indication: GASTROOESOPHAGEAL REFLUX DISEASE

REACTIONS (10)
  - Bronchitis [Recovered/Resolved]
  - Panic attack [Unknown]
  - Upper respiratory tract infection [Not Recovered/Not Resolved]
  - Arthralgia [Not Recovered/Not Resolved]
  - Ligament rupture [Not Recovered/Not Resolved]
  - Cardiac murmur [Not Recovered/Not Resolved]
  - Stress [Not Recovered/Not Resolved]
  - Urinary tract infection [Recovered/Resolved]
  - Palpitations [Not Recovered/Not Resolved]
  - Cardiac valve disease [Not Recovered/Not Resolved]

NARRATIVE: CASE EVENT DATE: 2015
